FAERS Safety Report 11085751 (Version 2)
Quarter: 2015Q2

REPORT INFORMATION
  Report Type: Spontaneous
  Country: US (occurrence: US)
  Receive Date: 20150503
  Receipt Date: 20150525
  Transmission Date: 20150821
  Serious: No
  Sender: FDA-Public Use
  Company Number: US-JNJFOC-20141207217

PATIENT
  Age: 16 Year
  Sex: Female

DRUGS (2)
  1. NAPROSYN [Concomitant]
     Active Substance: NAPROXEN
     Indication: PAIN
     Route: 065
  2. ORTHO MICRONOR [Suspect]
     Active Substance: NORETHINDRONE
     Indication: HAEMORRHAGE
     Route: 048
     Dates: start: 201411

REACTIONS (3)
  - Product use issue [Unknown]
  - Vulvovaginal discomfort [Unknown]
  - Pollakiuria [Unknown]

NARRATIVE: CASE EVENT DATE: 2014
